FAERS Safety Report 9067347 (Version 2)
Quarter: 2013Q1

REPORT INFORMATION
  Report Type: Report from Study
  Country: DE (occurrence: DE)
  Receive Date: 20130214
  Receipt Date: 20130215
  Transmission Date: 20140127
  Serious: Yes (Other)
  Sender: FDA-Public Use
  Company Number: DE-ABBOTT-13P-062-1048573-00

PATIENT
  Age: 56 Year
  Sex: Male
  Weight: 100 kg

DRUGS (12)
  1. HUMIRA [Suspect]
     Indication: RHEUMATOID ARTHRITIS
     Route: 058
     Dates: start: 20120314
  2. METHOTREXATE BIGMAR [Concomitant]
     Indication: RHEUMATOID ARTHRITIS
  3. SULFASALAZINE [Concomitant]
     Indication: RHEUMATOID ARTHRITIS
  4. LEFLUNOMIDE [Concomitant]
     Indication: RHEUMATOID ARTHRITIS
  5. NSAIDS/COXIBES (NON-ABBOTT) [Concomitant]
     Indication: RHEUMATOID ARTHRITIS
  6. GLUCOCOTICOIDS (NON-ABBOTT) [Concomitant]
     Indication: RHEUMATOID ARTHRITIS
  7. OPIOIDS [Concomitant]
     Indication: RHEUMATOID ARTHRITIS
  8. METOPROLOL SUCCINATE [Concomitant]
     Indication: HYPERTENSION
     Dosage: 1-0-1
  9. VALSARTAN [Concomitant]
     Indication: HYPERTENSION
     Dosage: 1-0-0
  10. AMLODIPINE [Concomitant]
     Indication: HYPERTENSION
     Dosage: 0-0-1
  11. SIMVASTATIN [Concomitant]
     Indication: HYPERURICAEMIA
     Dosage: 0-0-1
  12. IDEOS [Concomitant]
     Indication: OSTEOPOROSIS PROPHYLAXIS
     Dosage: 1-0-1

REACTIONS (10)
  - Renal failure acute [Not Recovered/Not Resolved]
  - Oedema peripheral [Not Recovered/Not Resolved]
  - Hypotension [Not Recovered/Not Resolved]
  - Vertigo [Not Recovered/Not Resolved]
  - Electrolyte imbalance [Not Recovered/Not Resolved]
  - Hypokalaemia [Not Recovered/Not Resolved]
  - Hypophosphataemia [Not Recovered/Not Resolved]
  - Hypochloraemia [Not Recovered/Not Resolved]
  - Blood creatinine increased [Not Recovered/Not Resolved]
  - Alcohol withdrawal syndrome [Unknown]
